FAERS Safety Report 6750547-8 (Version None)
Quarter: 2010Q2

REPORT INFORMATION
  Report Type: 
  Country: None (occurrence: None)
  Receive Date: 20100528
  Receipt Date: 20100528
  Transmission Date: 20101027
  Serious: Yes (Death)
  Sender: FDA-Public Use
  Company Number: None

PATIENT
  Age: 80 Year

DRUGS (5)
  1. REVLIMID [Suspect]
     Indication: MULTIPLE MYELOMA
     Dosage: REVLIMID 15MG DAILY ORALLY
     Route: 048
     Dates: start: 20090710, end: 20091124
  2. ASPIRIN [Concomitant]
  3. DEXAMETHASONE [Concomitant]
  4. CITALOPRAM [Concomitant]
  5. LEVOTHOID [Concomitant]

REACTIONS (8)
  - ASTHENIA [None]
  - DISEASE PROGRESSION [None]
  - LYMPHADENOPATHY [None]
  - LYMPHADENOPATHY MEDIASTINAL [None]
  - PLEURAL EFFUSION [None]
  - RASH PRURITIC [None]
  - SOFT TISSUE NEOPLASM [None]
  - URINARY TRACT INFECTION [None]
